FAERS Safety Report 12001704 (Version 1)
Quarter: 2016Q1

REPORT INFORMATION
  Report Type: Report from Study
  Country: US (occurrence: US)
  Receive Date: 20160204
  Receipt Date: 20160204
  Transmission Date: 20160526
  Serious: No
  Sender: FDA-Public Use
  Company Number: US-ABBVIE-15K-163-1432081-00

PATIENT
  Sex: Male

DRUGS (3)
  1. HUMIRA [Suspect]
     Active Substance: ADALIMUMAB
     Route: 065
     Dates: start: 2015
  2. HUMIRA [Suspect]
     Active Substance: ADALIMUMAB
     Indication: PSORIASIS
     Route: 065
     Dates: start: 2013, end: 2015
  3. COQ10 [Concomitant]
     Active Substance: UBIDECARENONE
     Indication: PRODUCT USED FOR UNKNOWN INDICATION

REACTIONS (8)
  - Drug specific antibody present [Unknown]
  - Ankle fracture [Recovered/Resolved]
  - Psoriasis [Recovering/Resolving]
  - Drug effect delayed [Unknown]
  - Nail disorder [Not Recovered/Not Resolved]
  - Injection site pain [Recovered/Resolved]
  - Rash [Unknown]
  - Adverse reaction [Unknown]

NARRATIVE: CASE EVENT DATE: 2015
